FAERS Safety Report 15745899 (Version 2)
Quarter: 2019Q4

REPORT INFORMATION
  Report Type: Spontaneous
  Country: GB (occurrence: GB)
  Receive Date: 20181220
  Receipt Date: 20191206
  Transmission Date: 20200122
  Serious: Yes (Hospitalization, Other)
  Sender: FDA-Public Use
  Company Number: GB-MYLANLABS-2018M1091343

PATIENT
  Age: 75 Year
  Sex: Male

DRUGS (4)
  1. RASAGILINE MESILATE [Suspect]
     Active Substance: RASAGILINE MESYLATE
     Indication: PARKINSON^S DISEASE
     Dosage: 1 MILLIGRAM
     Route: 065
  2. PRAMIPEXOLE. [Suspect]
     Active Substance: PRAMIPEXOLE
     Indication: PARKINSON^S DISEASE
     Dosage: MODIFIED RELEASE
     Route: 065
  3. ATROPINE. [Suspect]
     Active Substance: ATROPINE
     Indication: SALIVARY HYPERSECRETION
     Dosage: 0.5 MILLILITER
     Route: 047
  4. CARBIDOPA/ENTACAPONE/LEVODOPA [Suspect]
     Active Substance: CARBIDOPA\ENTACAPONE\LEVODOPA
     Indication: PARKINSON^S DISEASE
     Dosage: THREE TIMES A DAY
     Route: 065

REACTIONS (8)
  - Road traffic accident [Recovered/Resolved]
  - Delirium [Recovered/Resolved]
  - Gait disturbance [Recovered/Resolved]
  - Off label use [Recovered/Resolved]
  - Fall [Recovered/Resolved]
  - Dysarthria [Recovered/Resolved]
  - Psychotic disorder [Recovered/Resolved]
  - Condition aggravated [Recovered/Resolved]
